FAERS Safety Report 6539816-4 (Version None)
Quarter: 2010Q1

REPORT INFORMATION
  Report Type: 
  Country: None (occurrence: None)
  Receive Date: 20100115
  Receipt Date: 20100112
  Transmission Date: 20100710
  Serious: Yes (Disabling)
  Sender: FDA-Public Use
  Company Number: GB-PFIZER INC-2008058156

PATIENT
  Age: 37 Year
  Sex: Male

DRUGS (2)
  1. CHAMPIX [Suspect]
     Dosage: 1 MG, UNK
     Route: 048
     Dates: start: 20080609, end: 20080624
  2. ALBUTEROL [Concomitant]
     Indication: ASTHMA
     Dosage: 2 DF, AS NEEDED
     Route: 055
     Dates: start: 19970101

REACTIONS (7)
  - ANXIETY [None]
  - DEPRESSED MOOD [None]
  - DEPRESSION [None]
  - IMPAIRED WORK ABILITY [None]
  - SOCIAL AVOIDANT BEHAVIOUR [None]
  - TEARFULNESS [None]
  - TREMOR [None]
